FAERS Safety Report 10627485 (Version 1)
Quarter: 2014Q4

REPORT INFORMATION
  Report Type: Spontaneous
  Country: DE (occurrence: DE)
  Receive Date: 20141205
  Receipt Date: 20141205
  Transmission Date: 20150529
  Serious: Yes (Congenital Anomaly, Other)
  Sender: FDA-Public Use
  Company Number: DE-AUROBINDO-AUR-APL-2014-12640

PATIENT
  Age: 1 Day
  Sex: Male
  Weight: 2.62 kg

DRUGS (4)
  1. PROGYNOVA                          /00045402/ [Concomitant]
     Active Substance: ESTRADIOL VALERATE
     Indication: ASSISTED FERTILISATION
     Dosage: UNK
     Route: 064
  2. THYROXIN [Concomitant]
     Active Substance: LEVOTHYROXINE
     Indication: HYPOTHYROIDISM
     Dosage: UNK
     Route: 064
     Dates: start: 20130306, end: 20131209
  3. METFORMIN [Suspect]
     Active Substance: METFORMIN HYDROCHLORIDE
     Indication: GLUCOSE TOLERANCE TEST ABNORMAL
     Dosage: UNK
     Route: 064
  4. UTROGEST [Concomitant]
     Active Substance: PROGESTERONE
     Indication: ASSISTED FERTILISATION
     Dosage: UNK
     Route: 064

REACTIONS (3)
  - Foetal exposure during pregnancy [Unknown]
  - Small for dates baby [Unknown]
  - Brachydactyly [Not Recovered/Not Resolved]

NARRATIVE: CASE EVENT DATE: 20131209
